FAERS Safety Report 7726962-2 (Version None)
Quarter: 2011Q3

REPORT INFORMATION
  Report Type: 
  Country: None (occurrence: None)
  Receive Date: 20110902
  Receipt Date: 20110824
  Transmission Date: 20111222
  Serious: Yes (Other)
  Sender: FDA-Public Use
  Company Number: US-PFIZER INC-2011196809

PATIENT
  Sex: Female
  Weight: 77.098 kg

DRUGS (3)
  1. WELLBUTRIN [Suspect]
     Indication: DEPRESSION
     Dosage: 150 MG, 1X/DAY
     Route: 048
     Dates: start: 20110610
  2. PRISTIQ [Suspect]
     Indication: DEPRESSION
     Dosage: 50 MG, 1X/DAY
     Route: 048
     Dates: start: 20081201, end: 20110820
  3. WELLBUTRIN [Suspect]
     Indication: ATTENTION DEFICIT/HYPERACTIVITY DISORDER

REACTIONS (7)
  - WITHDRAWAL SYNDROME [None]
  - NAUSEA [None]
  - ATTENTION DEFICIT/HYPERACTIVITY DISORDER [None]
  - EMOTIONAL DISORDER [None]
  - PARAESTHESIA [None]
  - BURNING SENSATION [None]
  - FEELING ABNORMAL [None]
